FAERS Safety Report 10069739 (Version 1)
Quarter: 2014Q2

REPORT INFORMATION
  Report Type: Spontaneous
  Country: US (occurrence: US)
  Receive Date: 20140410
  Receipt Date: 20140410
  Transmission Date: 20141212
  Serious: No
  Sender: FDA-Public Use
  Company Number: US-BAYER-2014-041419

PATIENT
  Age: 62 Year
  Sex: Male

DRUGS (1)
  1. STAXYN (FDT/ODT) [Suspect]
     Dosage: 10 MG, OW
     Route: 048

REACTIONS (1)
  - Drug ineffective [Not Recovered/Not Resolved]
